FAERS Safety Report 5394462-3 (Version None)
Quarter: 2007Q3

REPORT INFORMATION
  Report Type: 
  Country: None (occurrence: None)
  Receive Date: 20070723
  Receipt Date: 20070504
  Transmission Date: 20080115
  Serious: No
  Sender: FDA-Public Use
  Company Number: US-AMGEN-US223129

PATIENT
  Sex: Female

DRUGS (1)
  1. VECTIBIX [Suspect]
     Dates: start: 20070101, end: 20070101

REACTIONS (4)
  - ACCIDENTAL EXPOSURE [None]
  - ERYTHEMA [None]
  - MALAISE [None]
  - PRURITUS [None]
